FAERS Safety Report 7979536-2 (Version None)
Quarter: 2011Q4

REPORT INFORMATION
  Report Type: 
  Country: None (occurrence: None)
  Receive Date: 20111214
  Receipt Date: 20111207
  Transmission Date: 20120403
  Serious: Yes (Death, Hospitalization)
  Sender: FDA-Public Use
  Company Number: TR-SANOFI-AVENTIS-2011SA080589

PATIENT
  Age: 65 Year
  Sex: Male
  Weight: 69 kg

DRUGS (4)
  1. SUNITINIB MALATE [Suspect]
     Indication: METASTATIC RENAL CELL CARCINOMA
     Route: 048
     Dates: start: 20070417, end: 20070514
  2. ZOLEDRONIC ACID [Concomitant]
     Dates: start: 20070530, end: 20070601
  3. FUROSEMIDE [Suspect]
     Route: 065
     Dates: start: 20070530, end: 20070601
  4. SUNITINIB MALATE [Suspect]
     Route: 048
     Dates: start: 20070528, end: 20070614

REACTIONS (4)
  - HYPONATRAEMIA [None]
  - SPEECH DISORDER [None]
  - BALANCE DISORDER [None]
  - DEATH [None]
